FAERS Safety Report 24198565 (Version 2)
Quarter: 2024Q3

REPORT INFORMATION
  Report Type: Spontaneous
  Country: RU (occurrence: RU)
  Receive Date: 20240812
  Receipt Date: 20240817
  Transmission Date: 20241017
  Serious: Yes (Hospitalization, Other)
  Sender: SANOFI AVENTIS
  Company Number: RU-SA-SAC20240807000654

PATIENT
  Age: 21 Year
  Sex: Female
  Weight: 65 kg

DRUGS (4)
  1. INSULIN ASPART [Suspect]
     Active Substance: INSULIN ASPART
     Indication: Type 1 diabetes mellitus
     Dosage: 100 IU, QD
     Route: 058
     Dates: start: 20220301, end: 20230101
  2. INSULIN ASPART [Suspect]
     Active Substance: INSULIN ASPART
     Dosage: 100 IU, QD
     Route: 058
     Dates: start: 20230101, end: 20230501
  3. APIDRA SOLOSTAR [Suspect]
     Active Substance: INSULIN GLULISINE
     Indication: Type 1 diabetes mellitus
     Dosage: 100 IU, QD
     Route: 058
     Dates: start: 20230501, end: 20230901
  4. INSULIN LISPRO [Suspect]
     Active Substance: INSULIN LISPRO
     Indication: Type 1 diabetes mellitus
     Dosage: 100 IU, QD
     Route: 058
     Dates: start: 20231001, end: 20240501

REACTIONS (1)
  - Abscess [Recovering/Resolving]

NARRATIVE: CASE EVENT DATE: 20220301
